FAERS Safety Report 4309167-7 (Version None)
Quarter: 2004Q1

REPORT INFORMATION
  Report Type: 
  Country: None (occurrence: None)
  Receive Date: 20040301
  Receipt Date: 20040212
  Transmission Date: 20041129
  Serious: Yes (Hospitalization)
  Sender: FDA-Public Use
  Company Number: FRP04000157

PATIENT
  Age: 83 Year
  Sex: Female

DRUGS (7)
  1. ACTONEL [Suspect]
     Indication: OSTEOPOROSIS
     Dosage: 35 MG, 1 /WEEK, ORAL
     Route: 048
     Dates: start: 20030708
  2. CACIT D3 (CALCIUM CARBONATE, COLECALCIFEROL) EFFERVESCENT GRANULES [Concomitant]
  3. SOTALOL HCL [Concomitant]
  4. KARDEGIC (ACETYLSALICYLATE LYSINE) [Concomitant]
  5. VITAMIN E [Concomitant]
  6. LAMALINE (OPIUM TINCTURE, BELLADONNA EXTRACT) [Concomitant]
  7. CLARITINE (LORATADINE) [Concomitant]

REACTIONS (8)
  - ABDOMINAL PAIN UPPER [None]
  - ALANINE AMINOTRANSFERASE INCREASED [None]
  - ASPARTATE AMINOTRANSFERASE INCREASED [None]
  - CHEST PAIN [None]
  - CYTOLYTIC HEPATITIS [None]
  - INFLAMMATION [None]
  - LEUKOPENIA [None]
  - NEUTROPENIA [None]
